FAERS Safety Report 13827885 (Version 8)
Quarter: 2017Q3

REPORT INFORMATION
  Report Type: Report from Study
  Country: US (occurrence: US)
  Receive Date: 20170803
  Receipt Date: 20170907
  Transmission Date: 20171127
  Serious: Yes (Life-Threatening, Hospitalization, Other)
  Sender: FDA-Public Use
  Company Number: US-BIOGEN-2017BI00436525

PATIENT
  Age: 67 Year
  Sex: Female
  Weight: 107.5 kg

DRUGS (78)
  1. APIXABAN [Concomitant]
     Active Substance: APIXABAN
     Indication: ATRIAL FIBRILLATION
     Route: 048
     Dates: end: 20170720
  2. BUMETANIDE. [Concomitant]
     Active Substance: BUMETANIDE
     Route: 065
     Dates: start: 20170801
  3. BUMETANIDE. [Concomitant]
     Active Substance: BUMETANIDE
     Route: 048
  4. GABAPENTIN. [Concomitant]
     Active Substance: GABAPENTIN
     Route: 048
     Dates: start: 20170721
  5. IPRATROPIUM/ALBUTEROL [Concomitant]
     Active Substance: ALBUTEROL\IPRATROPIUM
     Route: 065
     Dates: end: 20170720
  6. THEOPHYLLINE [Concomitant]
     Active Substance: THEOPHYLLINE ANHYDROUS
     Route: 065
     Dates: end: 20170803
  7. FENTANYL. [Concomitant]
     Active Substance: FENTANYL
     Route: 042
  8. MIDAZOLAM [Concomitant]
     Active Substance: MIDAZOLAM HYDROCHLORIDE
     Route: 042
     Dates: start: 20170720, end: 20170720
  9. PERFLUTREN [Concomitant]
     Active Substance: PERFLUTREN
     Indication: CARDIOVASCULAR EXAMINATION
     Route: 042
  10. LIDOCAINE. [Concomitant]
     Active Substance: LIDOCAINE
     Route: 065
     Dates: start: 20170720, end: 20170720
  11. VANCOMYCIN [Concomitant]
     Active Substance: VANCOMYCIN
     Indication: EVIDENCE BASED TREATMENT
     Route: 065
     Dates: start: 20170721, end: 20170721
  12. SODIUM PHOSPHATE [Concomitant]
     Active Substance: SODIUM PHOSPHATE
     Dosage: 30 MMOL
     Route: 042
     Dates: start: 20170720
  13. BUMETANIDE. [Concomitant]
     Active Substance: BUMETANIDE
     Route: 048
     Dates: end: 20170720
  14. GABAPENTIN. [Concomitant]
     Active Substance: GABAPENTIN
     Route: 048
     Dates: end: 20170720
  15. INSULIN GLARGINE [Concomitant]
     Active Substance: INSULIN GLARGINE
     Route: 042
     Dates: start: 20170720
  16. ROSUVASTATIN. [Concomitant]
     Active Substance: ROSUVASTATIN
     Route: 048
     Dates: end: 20170720
  17. ASPIRIN. [Concomitant]
     Active Substance: ASPIRIN
     Route: 048
     Dates: start: 20170721
  18. FENTANYL. [Concomitant]
     Active Substance: FENTANYL
     Dosage: 0-100MCG
     Route: 042
     Dates: start: 20170721
  19. SODIUM CHLORIDE. [Concomitant]
     Active Substance: SODIUM CHLORIDE
     Route: 042
     Dates: start: 20170720, end: 20170720
  20. SODIUM CHLORIDE. [Concomitant]
     Active Substance: SODIUM CHLORIDE
     Route: 042
     Dates: start: 20170723, end: 20170723
  21. MIDAZOLAM [Concomitant]
     Active Substance: MIDAZOLAM HYDROCHLORIDE
     Indication: AGITATION
     Route: 042
     Dates: start: 20170720
  22. NOREPINEPHRINE. [Concomitant]
     Active Substance: NOREPINEPHRINE
     Route: 042
     Dates: start: 20170720, end: 20170720
  23. NOREPINEPHRINE. [Concomitant]
     Active Substance: NOREPINEPHRINE
     Route: 042
     Dates: start: 20170725
  24. PHENYLEPHRINE [Concomitant]
     Active Substance: PHENYLEPHRINE\PHENYLEPHRINE HYDROCHLORIDE
     Route: 042
     Dates: start: 20170720, end: 20170720
  25. LOVENOX [Concomitant]
     Active Substance: ENOXAPARIN SODIUM
     Indication: THROMBOSIS PROPHYLAXIS
  26. ZOSYN [Concomitant]
     Active Substance: PIPERACILLIN SODIUM\TAZOBACTAM SODIUM
     Indication: EVIDENCE BASED TREATMENT
     Route: 042
     Dates: start: 20170721, end: 20170726
  27. PLACEBO [Suspect]
     Active Substance: UNSPECIFIED INGREDIENT
     Indication: ISCHAEMIC STROKE
     Route: 042
     Dates: start: 20170720, end: 20170720
  28. INSULIN GLARGINE [Concomitant]
     Active Substance: INSULIN GLARGINE
     Route: 058
  29. ISOSORBIDE MONONITRATE. [Concomitant]
     Active Substance: ISOSORBIDE MONONITRATE
     Route: 048
     Dates: end: 20170720
  30. THEOPHYLLINE [Concomitant]
     Active Substance: THEOPHYLLINE ANHYDROUS
     Route: 048
     Dates: end: 20170720
  31. ATORVASTATIN [Concomitant]
     Active Substance: ATORVASTATIN
     Indication: HYPERLIPIDAEMIA
     Route: 048
     Dates: start: 20170721
  32. FENTANYL. [Concomitant]
     Active Substance: FENTANYL
     Indication: ARTERIAL CATHETERISATION
     Route: 065
     Dates: start: 20170720
  33. FENTANYL. [Concomitant]
     Active Substance: FENTANYL
     Route: 042
     Dates: start: 20170721
  34. MIDAZOLAM [Concomitant]
     Active Substance: MIDAZOLAM HYDROCHLORIDE
     Route: 042
     Dates: start: 20170728
  35. VANCOMYCIN [Concomitant]
     Active Substance: VANCOMYCIN
     Route: 042
     Dates: start: 20170721, end: 20170723
  36. DEXTROSE. [Concomitant]
     Active Substance: DEXTROSE
     Dosage: 20 UNITS/KG/HR
     Route: 065
     Dates: start: 20170727
  37. BUDESONIDE/FORMOTEROL [Concomitant]
     Active Substance: BUDESONIDE\FORMOTEROL
     Indication: CHRONIC OBSTRUCTIVE PULMONARY DISEASE
     Route: 055
     Dates: start: 20170720, end: 20170720
  38. ALBUTEROL. [Concomitant]
     Active Substance: ALBUTEROL
     Indication: CHRONIC OBSTRUCTIVE PULMONARY DISEASE
     Route: 065
     Dates: end: 20170720
  39. SODIUM CHLORIDE. [Concomitant]
     Active Substance: SODIUM CHLORIDE
     Route: 042
     Dates: start: 20170722, end: 20170722
  40. SODIUM CHLORIDE. [Concomitant]
     Active Substance: SODIUM CHLORIDE
     Route: 042
     Dates: start: 20170720, end: 20170721
  41. LOVENOX [Concomitant]
     Active Substance: ENOXAPARIN SODIUM
     Indication: THROMBOSIS PROPHYLAXIS
     Route: 058
     Dates: start: 20170721
  42. VANCOMYCIN [Concomitant]
     Active Substance: VANCOMYCIN
     Route: 065
     Dates: start: 20170721, end: 20170725
  43. GABAPENTIN. [Concomitant]
     Active Substance: GABAPENTIN
     Route: 048
  44. INSULIN GLARGINE [Concomitant]
     Active Substance: INSULIN GLARGINE
     Indication: TYPE 2 DIABETES MELLITUS
     Route: 058
     Dates: end: 20170720
  45. ACETAMINOPHEN. [Concomitant]
     Active Substance: ACETAMINOPHEN
     Indication: PYREXIA
     Route: 048
     Dates: start: 20170721, end: 20170725
  46. SODIUM CHLORIDE. [Concomitant]
     Active Substance: SODIUM CHLORIDE
     Indication: CARDIOVASCULAR DISORDER
     Route: 042
     Dates: start: 20170720
  47. SODIUM CHLORIDE. [Concomitant]
     Active Substance: SODIUM CHLORIDE
     Route: 042
     Dates: start: 20170723, end: 20170723
  48. MAGNESIUM SULFATE. [Concomitant]
     Active Substance: MAGNESIUM SULFATE
     Indication: HYPOMAGNESAEMIA
     Route: 042
     Dates: start: 20170720
  49. NOREPINEPHRINE. [Concomitant]
     Active Substance: NOREPINEPHRINE
     Dosage: 4MG/250ML
     Route: 042
     Dates: start: 20170728
  50. TOPIRAMATE. [Concomitant]
     Active Substance: TOPIRAMATE
     Route: 048
     Dates: start: 20170721
  51. FLUTICASONE FUROATE/VILANTEROL [Concomitant]
     Route: 055
     Dates: end: 20170720
  52. UMECLIDINIUM BROMIDE [Concomitant]
     Active Substance: UMECLIDINIUM BROMIDE
     Indication: CHRONIC OBSTRUCTIVE PULMONARY DISEASE
     Route: 055
     Dates: end: 20170720
  53. IOHEXOL [Concomitant]
     Active Substance: IOHEXOL
     Dosage: 350 MG/ML
     Route: 042
     Dates: start: 20170720, end: 20170720
  54. DEXMEDETOMIDINE. [Concomitant]
     Active Substance: DEXMEDETOMIDINE
     Route: 042
     Dates: start: 20170721, end: 20170721
  55. PROPOFOL. [Concomitant]
     Active Substance: PROPOFOL
     Indication: SEDATION
     Route: 042
     Dates: start: 20170720, end: 20170721
  56. CHLORHEXIDINE [Concomitant]
     Active Substance: CHLORHEXIDINE
     Route: 048
     Dates: start: 20170721
  57. ZOSYN [Concomitant]
     Active Substance: PIPERACILLIN SODIUM\TAZOBACTAM SODIUM
     Route: 042
     Dates: start: 20170721, end: 20170721
  58. APIXABAN [Concomitant]
     Active Substance: APIXABAN
     Route: 065
  59. BUDESONIDE/FORMOTEROL [Concomitant]
     Active Substance: BUDESONIDE\FORMOTEROL
     Route: 055
     Dates: start: 20170721
  60. GABAPENTIN. [Concomitant]
     Active Substance: GABAPENTIN
     Route: 048
     Dates: start: 20170721
  61. SODIUM CHLORIDE. [Concomitant]
     Active Substance: SODIUM CHLORIDE
     Route: 042
     Dates: start: 20170720, end: 20170720
  62. MIDAZOLAM [Concomitant]
     Active Substance: MIDAZOLAM HYDROCHLORIDE
     Route: 042
     Dates: start: 20170721, end: 20170721
  63. NOREPINEPHRINE. [Concomitant]
     Active Substance: NOREPINEPHRINE
     Route: 065
     Dates: start: 20170721
  64. NOREPINEPHRINE. [Concomitant]
     Active Substance: NOREPINEPHRINE
     Route: 042
     Dates: start: 20170720, end: 20170722
  65. DEXMEDETOMIDINE. [Concomitant]
     Active Substance: DEXMEDETOMIDINE
     Route: 042
     Dates: start: 20170721, end: 20170721
  66. PEPCID [Concomitant]
     Active Substance: FAMOTIDINE
     Route: 048
     Dates: start: 20170720
  67. VANCOMYCIN [Concomitant]
     Active Substance: VANCOMYCIN
     Route: 042
     Dates: start: 20170724, end: 20170725
  68. AZITHROMYCIN ANHYDROUS. [Concomitant]
     Active Substance: AZITHROMYCIN ANHYDROUS
     Indication: EVIDENCE BASED TREATMENT
     Route: 042
     Dates: start: 20170721, end: 20170723
  69. AZITHROMYCIN ANHYDROUS. [Concomitant]
     Active Substance: AZITHROMYCIN ANHYDROUS
     Route: 065
     Dates: start: 20170727, end: 20170801
  70. DEXTROSE. [Concomitant]
     Active Substance: DEXTROSE
     Route: 065
     Dates: start: 20170721, end: 20170725
  71. ETOMIDATE. [Concomitant]
     Active Substance: ETOMIDATE
     Route: 042
     Dates: start: 20170720, end: 20170720
  72. SODIUM CHLORIDE. [Concomitant]
     Active Substance: SODIUM CHLORIDE
     Route: 042
     Dates: start: 20170722
  73. MUPIROCIN. [Concomitant]
     Active Substance: MUPIROCIN
     Route: 065
     Dates: start: 20170721
  74. NOREPINEPHRINE. [Concomitant]
     Active Substance: NOREPINEPHRINE
     Indication: CARDIOVASCULAR DISORDER
     Route: 042
     Dates: start: 20170722
  75. PERFLUTREN [Concomitant]
     Active Substance: PERFLUTREN
     Route: 042
     Dates: start: 20170721, end: 20170721
  76. SUCCINYLCHOLINE [Concomitant]
     Active Substance: SUCCINYLCHOLINE
     Route: 042
     Dates: start: 20170720, end: 20170720
  77. TOPIRAMATE. [Concomitant]
     Active Substance: TOPIRAMATE
     Route: 048
     Dates: end: 20170721
  78. DEXTROSE. [Concomitant]
     Active Substance: DEXTROSE
     Indication: DEEP VEIN THROMBOSIS
     Route: 042
     Dates: start: 20170720

REACTIONS (2)
  - Deep vein thrombosis [Not Recovered/Not Resolved]
  - Sepsis [Recovered/Resolved]

NARRATIVE: CASE EVENT DATE: 20170722
